FAERS Safety Report 4981131-4 (Version None)
Quarter: 2006Q1

REPORT INFORMATION
  Report Type: 
  Country: None (occurrence: None)
  Receive Date: 20060227
  Receipt Date: 20050224
  Transmission Date: 20060701
  Serious: Yes (Other)
  Sender: FDA-Public Use
  Company Number: WAES 0502USA03298

PATIENT
  Sex: Female

DRUGS (2)
  1. ZOCOR [Suspect]
     Indication: DYSLIPIDAEMIA
     Dosage: PO
     Route: 048
     Dates: start: 20050101, end: 20050101
  2. ZOCOR [Suspect]
     Indication: DYSLIPIDAEMIA
     Dosage: PO
     Route: 048
     Dates: start: 20050113, end: 20050101

REACTIONS (1)
  - RASH [None]
